FAERS Safety Report 8971368 (Version 3)
Quarter: 2013Q1

REPORT INFORMATION
  Report Type: Report from Study
  Country: BR (occurrence: BR)
  Receive Date: 20121218
  Receipt Date: 20130208
  Transmission Date: 20140127
  Serious: Yes (Hospitalization, Disabling, Other)
  Sender: FDA-Public Use
  Company Number: BR-ROCHE-1167589

PATIENT
  Age: 45 Year
  Sex: Female
  Weight: 55 kg

DRUGS (3)
  1. MABTHERA [Suspect]
     Indication: PRODUCT USED FOR UNKNOWN INDICATION
     Route: 065
     Dates: start: 20100601, end: 20120723
  2. TRAMADOL [Concomitant]
  3. CORTICORTEN [Concomitant]

REACTIONS (4)
  - Bone disorder [Not Recovered/Not Resolved]
  - Abasia [Recovered/Resolved]
  - Arthropathy [Recovered/Resolved]
  - Blood pressure abnormal [Recovered/Resolved]
